FAERS Safety Report 21052409 (Version 1)
Quarter: 2022Q3

REPORT INFORMATION
  Report Type: Spontaneous
  Country: US (occurrence: None)
  Receive Date: 20220706
  Receipt Date: 20220706
  Transmission Date: 20221026
  Serious: Yes (Other)
  Sender: FDA-Public Use
  Company Number: None

PATIENT
  Age: 75 Year
  Sex: Male
  Weight: 99 kg

DRUGS (8)
  1. ATENOLOL [Suspect]
     Active Substance: ATENOLOL
     Indication: Cardiac disorder
     Dosage: FREQUENCY : DAILY;?
     Route: 048
     Dates: start: 20210910, end: 20220101
  2. OMEPRAZOLE [Concomitant]
     Active Substance: OMEPRAZOLE
  3. metoprololl [Concomitant]
  4. LORATADINE [Concomitant]
     Active Substance: LORATADINE
  5. EZETIMIBE [Concomitant]
     Active Substance: EZETIMIBE
  6. HYDROXYCHLOROQUINE [Concomitant]
     Active Substance: HYDROXYCHLOROQUINE
  7. FLONASE [Concomitant]
     Active Substance: FLUTICASONE PROPIONATE
  8. VITAMIN D3 [Concomitant]
     Active Substance: CHOLECALCIFEROL

REACTIONS (2)
  - Heart rate increased [None]
  - Cardiac flutter [None]

NARRATIVE: CASE EVENT DATE: 20220101
